FAERS Safety Report 12827056 (Version 1)
Quarter: 2016Q4

REPORT INFORMATION
  Report Type: Spontaneous
  Country: US (occurrence: US)
  Receive Date: 20161007
  Receipt Date: 20161007
  Transmission Date: 20170207
  Serious: No
  Sender: FDA-Public Use
  Company Number: US-WATSON-2016-16357

PATIENT
  Age: 32 Year
  Sex: Female

DRUGS (9)
  1. FENTANYL-25 (WATSON LABORATORIES) [Suspect]
     Active Substance: FENTANYL
     Indication: SPINAL OPERATION
  2. HYDROMORPHONE [Concomitant]
     Active Substance: HYDROMORPHONE
     Indication: PRODUCT USED FOR UNKNOWN INDICATION
     Dosage: UNK, UNKNOWN
     Route: 065
  3. AMITRIPTYLINE [Concomitant]
     Active Substance: AMITRIPTYLINE
     Indication: PRODUCT USED FOR UNKNOWN INDICATION
     Dosage: UNK, UNKNOWN
     Route: 065
  4. FENTANYL-50 (WATSON LABORATORIES) [Suspect]
     Active Substance: FENTANYL
     Indication: SPINAL OPERATION
     Dosage: 50 ?G, Q1H, EVERY 3 DAYS
     Route: 062
  5. FENTANYL-50 (WATSON LABORATORIES) [Suspect]
     Active Substance: FENTANYL
     Indication: MIGRAINE
  6. METHOCARBAMOL. [Concomitant]
     Active Substance: METHOCARBAMOL
     Indication: PRODUCT USED FOR UNKNOWN INDICATION
     Dosage: UNK, UNKNOWN
     Route: 065
  7. FENTANYL-100 (WATSON LABORATORIES) [Suspect]
     Active Substance: FENTANYL
     Indication: MIGRAINE
  8. FENTANYL-25 (WATSON LABORATORIES) [Suspect]
     Active Substance: FENTANYL
     Indication: MIGRAINE
     Dosage: 25 ?G, Q1H, EVERY 3 DAYS
     Route: 062
  9. FENTANYL-100 (WATSON LABORATORIES) [Suspect]
     Active Substance: FENTANYL
     Indication: SPINAL OPERATION
     Dosage: 100 ?G, Q1H, EVERY 3 DAYS
     Route: 062

REACTIONS (3)
  - Tremor [Recovered/Resolved]
  - Nausea [Recovered/Resolved]
  - Malaise [Recovered/Resolved]
